FAERS Safety Report 24792036 (Version 1)
Quarter: 2024Q4

REPORT INFORMATION
  Report Type: Spontaneous
  Country: US (occurrence: US)
  Receive Date: 20241231
  Receipt Date: 20241231
  Transmission Date: 20250115
  Serious: Yes (Hospitalization, Other)
  Sender: Steriscience PTE
  Company Number: US-STERISCIENCE B.V.-2024-ST-002201

PATIENT
  Age: 6 Decade

DRUGS (9)
  1. BUPIVACAINE [Suspect]
     Active Substance: BUPIVACAINE
     Indication: Back pain
     Dosage: 24 MILLIGRAM PER MILLILITRE, INTRATHECAL CATHETER INFUSION
     Route: 037
  2. BUPIVACAINE [Suspect]
     Active Substance: BUPIVACAINE
     Dosage: 12.6 MILLIGRAM, QD, BASAL INFUSION; INTRATHECAL CATHETER INFUSION
     Route: 037
  3. BUPIVACAINE [Suspect]
     Active Substance: BUPIVACAINE
     Dosage: 30 MILLIGRAM PER MILLILITRE, INTRATHECAL CATHETER INFUSION
     Route: 037
     Dates: start: 201605
  4. BUPIVACAINE [Suspect]
     Active Substance: BUPIVACAINE
     Dosage: 24 MILLIGRAM PER MILLILITRE
     Route: 037
  5. FENTANYL [Suspect]
     Active Substance: FENTANYL
     Indication: Back pain
     Dosage: 50 MCG/ML; INTRATHECAL CATHETER INFUSION
     Route: 037
     Dates: start: 201605
  6. FENTANYL [Suspect]
     Active Substance: FENTANYL
     Dosage: 19 MICROGRAM, QD,INTRATHECAL CATHETER INFUSION
     Route: 037
     Dates: end: 202106
  7. HYDROMORPHONE [Suspect]
     Active Substance: HYDROMORPHONE
     Indication: Back pain
     Dosage: 720 MCG/ML; INTRATHECAL CATHETER INFUSION
     Route: 037
  8. HYDROMORPHONE [Suspect]
     Active Substance: HYDROMORPHONE
     Dosage: 380 MICROGRAM, QD, BASAL INFUSION; INTRATHECAL CATHETER INFUSION
     Route: 037
  9. SALINE [Concomitant]
     Active Substance: SODIUM CHLORIDE
     Indication: Pain
     Dosage: UNK
     Route: 065

REACTIONS (3)
  - Catheter site granuloma [Unknown]
  - Urinary retention [Unknown]
  - Off label use [Unknown]
